FAERS Safety Report 8199233-0 (Version None)
Quarter: 2012Q1

REPORT INFORMATION
  Report Type: 
  Country: None (occurrence: None)
  Receive Date: 20120309
  Receipt Date: 20120229
  Transmission Date: 20120608
  Serious: Yes (Other)
  Sender: FDA-Public Use
  Company Number: US-ELI_LILLY_AND_COMPANY-US201109000245

PATIENT
  Sex: Male

DRUGS (3)
  1. HUMALOG MIX 75/25 [Suspect]
     Indication: TYPE 2 DIABETES MELLITUS
     Dosage: 45 U, BID
  2. HUMALOG MIX 75/25 [Suspect]
     Dosage: 45 U, BID
  3. HUMALOG [Suspect]
     Indication: TYPE 2 DIABETES MELLITUS
     Dosage: UNK, PRN

REACTIONS (12)
  - BACK INJURY [None]
  - DIPLOPIA [None]
  - DRUG INEFFECTIVE [None]
  - FALL [None]
  - HYPOPHAGIA [None]
  - BLOOD GLUCOSE INCREASED [None]
  - EYE DISORDER [None]
  - LOSS OF CONSCIOUSNESS [None]
  - BLOOD GLUCOSE DECREASED [None]
  - SYNCOPE [None]
  - INCORRECT DOSE ADMINISTERED [None]
  - OVERDOSE [None]
